FAERS Safety Report 12126599 (Version 4)
Quarter: 2016Q2

REPORT INFORMATION
  Report Type: Report from Study
  Country: CA (occurrence: CA)
  Receive Date: 20160229
  Receipt Date: 20160429
  Transmission Date: 20160815
  Serious: Yes (Other)
  Sender: FDA-Public Use
  Company Number: CA-JNJFOC-20160205086

PATIENT
  Age: 60 Year
  Sex: Male

DRUGS (1)
  1. IMBRUVICA [Suspect]
     Active Substance: IBRUTINIB
     Indication: CHRONIC LYMPHOCYTIC LEUKAEMIA
     Route: 048
     Dates: start: 20160121

REACTIONS (11)
  - Hypoaesthesia [Not Recovered/Not Resolved]
  - Infective glossitis [Recovering/Resolving]
  - Cough [Not Recovered/Not Resolved]
  - Rash [Recovered/Resolved]
  - Heart rate increased [Not Recovered/Not Resolved]
  - Salivary gland calculus [Recovering/Resolving]
  - Laboratory test abnormal [Not Recovered/Not Resolved]
  - Rash erythematous [Recovered/Resolved]
  - Dyspepsia [Not Recovered/Not Resolved]
  - Infection [Not Recovered/Not Resolved]
  - Contusion [Not Recovered/Not Resolved]

NARRATIVE: CASE EVENT DATE: 201601
